FAERS Safety Report 24210209 (Version 1)
Quarter: 2024Q3

REPORT INFORMATION
  Report Type: Spontaneous
  Country: US (occurrence: None)
  Receive Date: 20240813
  Receipt Date: 20240813
  Transmission Date: 20241017
  Serious: No
  Sender: Public
  Company Number: None

PATIENT
  Age: 46 Year
  Sex: 0

DRUGS (1)
  1. OTEZLA [Suspect]
     Active Substance: APREMILAST
     Indication: Psoriatic arthropathy
     Dosage: FREQUENCY : DAILY;?
     Dates: start: 20240701

REACTIONS (2)
  - Swelling of eyelid [None]
  - Ocular hyperaemia [None]

NARRATIVE: CASE EVENT DATE: 20240701
